FAERS Safety Report 4941408-5 (Version None)
Quarter: 2006Q1

REPORT INFORMATION
  Report Type: 
  Country: None (occurrence: None)
  Receive Date: 20060313
  Receipt Date: 20060228
  Transmission Date: 20060701
  Serious: Yes (Hospitalization)
  Sender: FDA-Public Use
  Company Number: 2006AP01002

PATIENT
  Age: 10984 Day
  Sex: Female

DRUGS (1)
  1. SEROQUEL [Suspect]
     Indication: BIPOLAR DISORDER
     Dosage: ON THE FIRST DAY OF DOSING THE PATIENT TOOK ONE EXTRA  TABLET BY MISTAKE.
     Route: 048
     Dates: start: 20060215, end: 20060226

REACTIONS (2)
  - BIPOLAR I DISORDER [None]
  - PSYCHOTIC DISORDER [None]
